FAERS Safety Report 5289630-5 (Version None)
Quarter: 2007Q2

REPORT INFORMATION
  Report Type: 
  Country: None (occurrence: None)
  Receive Date: 20070406
  Receipt Date: 20070330
  Transmission Date: 20071010
  Serious: Yes (Hospitalization, Disabling)
  Sender: FDA-Public Use
  Company Number: 2006CG01812

PATIENT
  Age: 411 Month
  Sex: Male
  Weight: 78 kg

DRUGS (1)
  1. SYMBICORT [Suspect]
     Indication: ASTHMA
     Dosage: 320/9 UG PER DOSE TWICE DAILY
     Route: 055
     Dates: start: 20030101

REACTIONS (1)
  - OSTEONECROSIS [None]
